FAERS Safety Report 9540539 (Version 5)
Quarter: 2013Q4

REPORT INFORMATION
  Report Type: Report from Study
  Country: GB (occurrence: GB)
  Receive Date: 20130920
  Receipt Date: 20131017
  Transmission Date: 20140711
  Serious: Yes (Hospitalization)
  Sender: FDA-Public Use
  Company Number: GB-PFIZER INC-2013257691

PATIENT
  Age: 60 Year
  Sex: Male
  Weight: 102.8 kg

DRUGS (10)
  1. TEMSIROLIMUS [Suspect]
     Indication: TRANSITIONAL CELL CARCINOMA
     Dosage: 10 MG, UNK
     Dates: start: 20130704
  2. CISPLATIN [Suspect]
     Indication: TRANSITIONAL CELL CARCINOMA
     Dosage: 154 MG, UNK
     Dates: start: 20130613
  3. GEMCITABINE HYDROCHLORIDE [Suspect]
     Indication: TRANSITIONAL CELL CARCINOMA
     Dosage: 2200 MG, UNK
     Dates: start: 20130613
  4. CALENDULA CREAM [Concomitant]
     Indication: ANAL FISSURE
     Dosage: 1 G, DAILY
     Dates: start: 20130716
  5. BONJELA COMPLETE PLUS [Concomitant]
     Indication: MOUTH ULCERATION
     Dosage: 1 GTT, DAILY
     Dates: start: 20130716
  6. LAXIDO [Concomitant]
     Indication: CONSTIPATION
     Dosage: 1 DF (SACHET), DAILY
     Dates: start: 20130716
  7. CYCLIZINE HYDROCHLORIDE [Concomitant]
     Indication: NAUSEA
     Dosage: 50 MG, DAILY
     Dates: start: 20130716
  8. FLUCLOXACILLIN [Concomitant]
     Indication: PHLEBITIS
     Dosage: 500 MG, 4X/DAY
     Dates: start: 20130727, end: 20130804
  9. METOCLOPRAMIDE [Concomitant]
     Indication: GASTROOESOPHAGEAL REFLUX DISEASE
     Dosage: 10 MG, DAILY
     Dates: start: 20130718
  10. GAVISCON [Concomitant]
     Indication: GASTROOESOPHAGEAL REFLUX DISEASE
     Dosage: 10 - 20MLS DAILY
     Dates: start: 20130718

REACTIONS (1)
  - Febrile neutropenia [Recovered/Resolved]
